FAERS Safety Report 7582605-2 (Version None)
Quarter: 2011Q2

REPORT INFORMATION
  Report Type: 
  Country: None (occurrence: None)
  Receive Date: 20110630
  Receipt Date: 20110627
  Transmission Date: 20111010
  Serious: Yes (Other)
  Sender: FDA-Public Use
  Company Number: US-JNJFOC-2011003910

PATIENT
  Sex: Female
  Weight: 72.6 kg

DRUGS (3)
  1. BENADRYL [Suspect]
     Indication: LOCAL ANAESTHESIA
     Dosage: DAILY DOSE TEXT: THREE MILLITERS 3-5 SYRINGES
     Route: 030
     Dates: start: 20110214, end: 20110214
  2. BENADRYL [Suspect]
     Route: 030
  3. SITAGLIPTIN [Concomitant]
     Indication: DIABETES MELLITUS
     Dosage: DAILY DOSE TEXT: 100MG ONCE DAILY
     Route: 065
     Dates: start: 20090101

REACTIONS (3)
  - HYPOAESTHESIA [None]
  - OFF LABEL USE [None]
  - SYNCOPE [None]
